FAERS Safety Report 7672110-7 (Version None)
Quarter: 2011Q3

REPORT INFORMATION
  Report Type: 
  Country: None (occurrence: None)
  Receive Date: 20110809
  Receipt Date: 20110802
  Transmission Date: 20111222
  Serious: Yes (Other)
  Sender: FDA-Public Use
  Company Number: PHEH2011US00617

PATIENT
  Sex: Male

DRUGS (1)
  1. GLEEVEC [Suspect]
     Indication: MALIGNANT SOFT TISSUE NEOPLASM
     Dosage: 400 MG, DAILY
     Route: 048
     Dates: start: 20110614

REACTIONS (7)
  - PERIORBITAL OEDEMA [None]
  - WEIGHT DECREASED [None]
  - LOSS OF CONSCIOUSNESS [None]
  - DISORIENTATION [None]
  - FATIGUE [None]
  - HYPOGLYCAEMIA [None]
  - JOINT SWELLING [None]
